APPROVED DRUG PRODUCT: RANOLAZINE
Active Ingredient: RANOLAZINE
Strength: 500MG
Dosage Form/Route: TABLET, EXTENDED RELEASE;ORAL
Application: A201046 | Product #001 | TE Code: AB
Applicant: CHARTWELL RX SCIENCES LLC
Approved: Jul 29, 2013 | RLD: No | RS: No | Type: RX